FAERS Safety Report 5477490-9 (Version None)
Quarter: 2007Q4

REPORT INFORMATION
  Report Type: 
  Country: None (occurrence: None)
  Receive Date: 20071004
  Receipt Date: 20070924
  Transmission Date: 20080405
  Serious: Yes (Other)
  Sender: FDA-Public Use
  Company Number: NL-PFIZER INC-2007073813

PATIENT
  Sex: Female
  Weight: 78 kg

DRUGS (12)
  1. LYRICA [Suspect]
     Indication: DIABETIC NEUROPATHY
     Dosage: DAILY DOSE:300MG
     Route: 048
  2. DRUG USED IN DIABETES [Concomitant]
  3. NOVOMIX [Concomitant]
  4. TRYPTIZOL [Concomitant]
  5. LORAZEPAM [Concomitant]
  6. ACCUPRIL [Concomitant]
  7. PANTOPRAZOLE SODIUM [Concomitant]
  8. ALL OTHER THERAPEUTIC PRODUCTS [Concomitant]
  9. SIMVASTATIN [Concomitant]
  10. BUMETANIDE [Concomitant]
  11. NEURONTIN [Concomitant]
  12. GABAPENTIN [Concomitant]

REACTIONS (1)
  - BLOOD GLUCOSE INCREASED [None]
